FAERS Safety Report 7265395-2 (Version None)
Quarter: 2011Q1

REPORT INFORMATION
  Report Type: 
  Country: None (occurrence: None)
  Receive Date: 20110131
  Receipt Date: 20110119
  Transmission Date: 20110831
  Serious: Yes (Hospitalization)
  Sender: FDA-Public Use
  Company Number: NL-ROCHE-739799

PATIENT
  Age: 60 Year
  Sex: Male
  Weight: 100.6 kg

DRUGS (3)
  1. MYCOPHENOLATE MOFETIL [Suspect]
     Route: 048
     Dates: start: 20090116
  2. PREDNISOLONE [Suspect]
     Route: 048
     Dates: start: 20090115
  3. NEORAL [Suspect]
     Route: 048
     Dates: start: 20090116

REACTIONS (2)
  - DIABETIC ULCER [None]
  - CELLULITIS STREPTOCOCCAL [None]
